FAERS Safety Report 5333940-X (Version None)
Quarter: 2007Q2

REPORT INFORMATION
  Report Type: 
  Country: None (occurrence: None)
  Receive Date: 20070524
  Receipt Date: 20070514
  Transmission Date: 20071010
  Serious: Yes (Disabling)
  Sender: FDA-Public Use
  Company Number: US-SANOFI-SYNTHELABO-A03200702006

PATIENT
  Sex: Male
  Weight: 88 kg

DRUGS (11)
  1. PLAVIX [Suspect]
     Indication: STENT PLACEMENT
     Route: 048
  2. PLAVIX [Suspect]
     Indication: CORONARY ARTERY DISEASE
     Route: 048
  3. LASIX [Concomitant]
     Route: 048
  4. GLUCOPHAGE [Concomitant]
     Route: 048
  5. FISH OIL [Concomitant]
     Dosage: UNK
     Route: 065
  6. COREG [Concomitant]
     Route: 048
  7. ASPIRIN [Concomitant]
     Route: 048
  8. ALTACE [Concomitant]
     Route: 048
  9. ALDACTONE [Concomitant]
     Route: 048
  10. ACTOS [Concomitant]
     Route: 048
  11. VYTORIN [Suspect]
     Dosage: UNK
     Route: 048

REACTIONS (4)
  - ASTHENIA [None]
  - JOINT RANGE OF MOTION DECREASED [None]
  - MUSCULOSKELETAL STIFFNESS [None]
  - MYALGIA [None]
